FAERS Safety Report 5188044-6 (Version None)
Quarter: 2006Q4

REPORT INFORMATION
  Report Type: 
  Country: None (occurrence: None)
  Receive Date: 20061214
  Receipt Date: 20061128
  Transmission Date: 20070319
  Serious: Yes (Death, Other)
  Sender: FDA-Public Use
  Company Number: DSA_29054_2006

PATIENT
  Age: 82 Year
  Sex: Male
  Weight: 32 kg

DRUGS (13)
  1. RENIVACE [Suspect]
     Indication: MYOCARDIAL INFARCTION
     Dosage: 2.5 MG QD PO
     Route: 048
     Dates: start: 20060905, end: 20061012
  2. ASPIRIN [Concomitant]
  3. PANALDINE [Concomitant]
  4. MAGNESIUM OXIDE [Concomitant]
  5. SIGMART [Concomitant]
  6. ARTIST [Concomitant]
  7. LUPRAC [Concomitant]
  8. LASIX [Concomitant]
  9. FLUITRAN [Concomitant]
  10. ALDACTONE [Concomitant]
  11. ANTIBIOTIC PREPARATIONS [Concomitant]
  12. UNSPECIFIED BETA BLOCKER [Concomitant]
  13. UNSPECIFIED DIURETIC [Concomitant]

REACTIONS (6)
  - BLOOD PRESSURE DECREASED [None]
  - CARDIO-RESPIRATORY ARREST [None]
  - EOSINOPHILIA [None]
  - GASTROINTESTINAL HAEMORRHAGE [None]
  - WHITE BLOOD CELL COUNT INCREASED [None]
  - WRONG TECHNIQUE IN DRUG USAGE PROCESS [None]
